FAERS Safety Report 5537017-X (Version None)
Quarter: 2007Q4

REPORT INFORMATION
  Report Type: 
  Country: None (occurrence: None)
  Receive Date: 20071207
  Receipt Date: 20060201
  Transmission Date: 20080405
  Serious: Yes (Other)
  Sender: FDA-Public Use
  Company Number: DE-JNJFOC-20071005378

PATIENT
  Age: 47 Year
  Sex: Male
  Weight: 93 kg

DRUGS (1)
  1. HALOPERIDOL [Suspect]
     Indication: SCHIZOAFFECTIVE DISORDER
     Route: 050

REACTIONS (3)
  - COGNITIVE DISORDER [None]
  - EXTRAPYRAMIDAL DISORDER [None]
  - WEIGHT INCREASED [None]
